FAERS Safety Report 8592998-5 (Version None)
Quarter: 2012Q3

REPORT INFORMATION
  Report Type: 
  Country: None (occurrence: None)
  Receive Date: 20120814
  Receipt Date: 19890925
  Transmission Date: 20120928
  Serious: Yes (Hospitalization)
  Sender: FDA-Public Use
  Company Number: US-ROCHE-1100655

PATIENT
  Age: 55 Year
  Sex: Male

DRUGS (3)
  1. ACTIVASE [Suspect]
     Indication: ACUTE MYOCARDIAL INFARCTION
  2. NITROGLYCERIN [Concomitant]
     Route: 060
  3. HEPARIN [Concomitant]

REACTIONS (3)
  - BLOOD CREATINE PHOSPHOKINASE MB INCREASED [None]
  - ATRIAL FIBRILLATION [None]
  - EXTRASYSTOLES [None]
